FAERS Safety Report 22170840 (Version 2)
Quarter: 2023Q2

REPORT INFORMATION
  Report Type: Spontaneous
  Country: AR (occurrence: AR)
  Receive Date: 20230404
  Receipt Date: 20230411
  Transmission Date: 20230722
  Serious: Yes (Hospitalization)
  Sender: FDA-Public Use
  Company Number: AR-OEPI8P-1017

PATIENT

DRUGS (3)
  1. NERLYNX [Suspect]
     Active Substance: NERATINIB
     Indication: Metastases to lymph nodes
     Dosage: THERAPY INTERVAL: DAILY. THERAPY DATES: UNK. THE PATIENT SWITCHED TO ANOTHER TREATMENT.
     Route: 065
     Dates: start: 20220819
  2. NERLYNX [Suspect]
     Active Substance: NERATINIB
     Indication: HER2 positive breast cancer
  3. CAPECITABINE [Concomitant]
     Active Substance: CAPECITABINE
     Indication: Product used for unknown indication
     Dosage: DOSE AND THERAPY INTERVAL: REDUCED TO 2 PILLS PER DAY. THERAPY DATES: UNK

REACTIONS (2)
  - Lymphoedema [Unknown]
  - Pain [Unknown]
